FAERS Safety Report 5711577-8 (Version None)
Quarter: 2008Q2

REPORT INFORMATION
  Report Type: 
  Country: None (occurrence: None)
  Receive Date: 20080418
  Receipt Date: 20080418
  Transmission Date: 20081010
  Serious: Yes (Life-Threatening, Hospitalization)
  Sender: FDA-Public Use
  Company Number: None

PATIENT
  Age: 67 Year
  Sex: Male
  Weight: 67.1324 kg

DRUGS (1)
  1. CELLCEPT [Suspect]
     Indication: PROPHYLAXIS AGAINST TRANSPLANT REJECTION
     Dosage: 250 MG TWICE DAILY PO
     Route: 048
     Dates: start: 20030501, end: 20080417

REACTIONS (12)
  - AMNESIA [None]
  - ASTHENIA [None]
  - COORDINATION ABNORMAL [None]
  - DEMYELINATION [None]
  - HEPATOCELLULAR INJURY [None]
  - ILL-DEFINED DISORDER [None]
  - MENTAL DISORDER [None]
  - NERVOUS SYSTEM DISORDER [None]
  - NEUROLOGICAL SYMPTOM [None]
  - OPTIC NERVE DISORDER [None]
  - PYREXIA [None]
  - VISUAL DISTURBANCE [None]
